FAERS Safety Report 15406797 (Version 5)
Quarter: 2018Q4

REPORT INFORMATION
  Report Type: Spontaneous
  Country: US (occurrence: US)
  Receive Date: 20180920
  Receipt Date: 20181116
  Transmission Date: 20190204
  Serious: Yes (Other)
  Sender: FDA-Public Use
  Company Number: US-VIIV HEALTHCARE LIMITED-US2018169206

PATIENT
  Age: 52 Year
  Sex: Male

DRUGS (2)
  1. TRIUMEQ [Suspect]
     Active Substance: ABACAVIR SULFATE\DOLUTEGRAVIR SODIUM\LAMIVUDINE
     Indication: HIV INFECTION
     Dosage: UNK, QD
     Route: 048
     Dates: start: 201809
  2. VALIUM [Concomitant]
     Active Substance: DIAZEPAM

REACTIONS (19)
  - Anxiety [Not Recovered/Not Resolved]
  - Condition aggravated [Unknown]
  - HIV infection [Not Recovered/Not Resolved]
  - Urine abnormality [Not Recovered/Not Resolved]
  - Fatigue [Recovered/Resolved]
  - Nausea [Unknown]
  - Pollakiuria [Recovered/Resolved]
  - Frequent bowel movements [Not Recovered/Not Resolved]
  - Faeces pale [Not Recovered/Not Resolved]
  - Muscle spasms [Recovered/Resolved]
  - Terminal insomnia [Unknown]
  - Malaise [Unknown]
  - Gonorrhoea [Unknown]
  - Insomnia [Unknown]
  - Dysuria [Unknown]
  - Depression [Recovered/Resolved]
  - Influenza like illness [Unknown]
  - Product dose omission [Recovered/Resolved]
  - Penile burning sensation [Unknown]

NARRATIVE: CASE EVENT DATE: 201809
